FAERS Safety Report 20247430 (Version 1)
Quarter: 2021Q4

REPORT INFORMATION
  Report Type: Spontaneous
  Country: DE (occurrence: DE)
  Receive Date: 20211229
  Receipt Date: 20211229
  Transmission Date: 20220303
  Serious: Yes (Other)
  Sender: FDA-Public Use
  Company Number: None

PATIENT
  Age: 33 Year
  Sex: Female

DRUGS (9)
  1. PACLITAXEL [Suspect]
     Active Substance: PACLITAXEL
     Indication: Breast cancer
     Dosage: TWO TIMES CHEMOTHERAPY
     Route: 065
  2. EPIRUBICIN [Suspect]
     Active Substance: EPIRUBICIN
     Indication: Breast cancer
     Dosage: CHEMOTHERAPY WITH CYCLOPHOSPHAMID: FOUR TIMES
     Route: 065
  3. CYCLOPHOSPHAMIDE [Suspect]
     Active Substance: CYCLOPHOSPHAMIDE
     Indication: Breast cancer
     Dosage: CHEMOTHERAPY WITH EPIRUBICIN; FOUR TIMES
     Route: 042
  4. PERJETA [Suspect]
     Active Substance: PERTUZUMAB
     Indication: Breast cancer
     Dosage: DUAL BLOCKAGE WITH HERCEPTIN AND CHEMOTHERAPY
     Route: 065
  5. KADCYLA [Suspect]
     Active Substance: ADO-TRASTUZUMAB EMTANSINE
     Indication: Breast cancer
     Dosage: SIX CYCLES
     Route: 042
  6. HERCEPTIN [Suspect]
     Active Substance: TRASTUZUMAB
     Indication: Breast cancer
     Dosage: TWO TIMES CHEMOTHERAPY
     Route: 065
  7. MESNA [Suspect]
     Active Substance: MESNA
     Indication: Product used for unknown indication
     Dosage: DURING CYCLOPHOSPHAMID INFUSION
     Route: 065
  8. PACLITAXEL [Suspect]
     Active Substance: PACLITAXEL
     Indication: Breast cancer
     Dosage: CHEMOTHERAPY
     Route: 065
  9. ZOLADEX [Concomitant]
     Active Substance: GOSERELIN ACETATE

REACTIONS (9)
  - Polyneuropathy [Unknown]
  - Skin disorder [Unknown]
  - Influenza like illness [Unknown]
  - Alopecia [Recovered/Resolved]
  - Mucosal disorder [Unknown]
  - Pain in extremity [Unknown]
  - Bladder irritation [Not Recovered/Not Resolved]
  - Madarosis [Recovering/Resolving]
  - Hair growth abnormal [Not Recovered/Not Resolved]
